FAERS Safety Report 10062900 (Version 1)
Quarter: 2014Q2

REPORT INFORMATION
  Report Type: Report from Study
  Country: US (occurrence: US)
  Receive Date: 20140407
  Receipt Date: 20140407
  Transmission Date: 20141212
  Serious: Yes (Hospitalization, Other)
  Sender: FDA-Public Use
  Company Number: US-ABBVIE-14P-163-1218711-00

PATIENT
  Age: 38 Year
  Sex: Male
  Weight: 90.8 kg

DRUGS (6)
  1. HUMIRA [Suspect]
     Indication: CROHN^S DISEASE
     Dates: start: 201303, end: 201303
  2. HUMIRA [Suspect]
     Dosage: TWO WEEKS AFTER 160 MG DOSE
     Dates: start: 2013, end: 2013
  3. HUMIRA [Suspect]
     Dates: start: 201304, end: 201304
  4. HUMIRA [Suspect]
     Dates: start: 201311
  5. WELLBUTRIN [Concomitant]
     Indication: DEPRESSION
  6. ZOLOFT [Concomitant]
     Indication: DEPRESSION

REACTIONS (6)
  - Large intestinal stenosis [Recovered/Resolved]
  - Abdominal pain [Recovered/Resolved]
  - Affective disorder [Not Recovered/Not Resolved]
  - Abscess intestinal [Recovered/Resolved]
  - Large intestine perforation [Recovered/Resolved]
  - Enterococcal infection [Recovered/Resolved]
